FAERS Safety Report 7401342-8 (Version None)
Quarter: 2011Q2

REPORT INFORMATION
  Report Type: 
  Country: None (occurrence: None)
  Receive Date: 20110407
  Receipt Date: 20110401
  Transmission Date: 20111010
  Serious: Yes (Other)
  Sender: FDA-Public Use
  Company Number: US-GILEAD-2011-0037355

PATIENT
  Sex: Male
  Weight: 72.64 kg

DRUGS (2)
  1. LETAIRIS [Suspect]
     Indication: PULMONARY HYPERTENSION
     Dates: start: 20100910, end: 20110309
  2. LETAIRIS [Suspect]
     Indication: PLEURAL NEOPLASM

REACTIONS (1)
  - BONE MARROW TRANSPLANT [None]
